FAERS Safety Report 16074707 (Version 1)
Quarter: 2019Q1

REPORT INFORMATION
  Report Type: Spontaneous
  Country: IT (occurrence: IT)
  Receive Date: 20190314
  Receipt Date: 20190314
  Transmission Date: 20190418
  Serious: Yes (Hospitalization)
  Sender: FDA-Public Use
  Company Number: IT-MYLANLABS-2019M1023332

PATIENT
  Age: 78 Year
  Sex: Male

DRUGS (9)
  1. PRADAXA [Concomitant]
     Active Substance: DABIGATRAN ETEXILATE MESYLATE
     Dosage: UNK
     Route: 048
  2. LASIX [Concomitant]
     Active Substance: FUROSEMIDE
     Dosage: 25 MG
     Route: 048
  3. TRIATEC                            /00885601/ [Suspect]
     Active Substance: RAMIPRIL
     Indication: PRODUCT USED FOR UNKNOWN INDICATION
     Dosage: 80 MG
     Route: 048
  4. ESOMEPRAZOLE. [Suspect]
     Active Substance: ESOMEPRAZOLE MAGNESIUM
     Indication: PRODUCT USED FOR UNKNOWN INDICATION
     Dosage: 40 MG, UNK
     Route: 048
  5. METFORMIN [Suspect]
     Active Substance: METFORMIN HYDROCHLORIDE
     Indication: PRODUCT USED FOR UNKNOWN INDICATION
     Dosage: UNK
  6. LUVION                             /00252501/ [Concomitant]
     Active Substance: CANRENOIC ACID
     Dosage: 50 MG
     Route: 048
  7. OLMESARTAN MEDOXOMIL. [Suspect]
     Active Substance: OLMESARTAN MEDOXOMIL
     Indication: PRODUCT USED FOR UNKNOWN INDICATION
     Dosage: UNK
  8. LESCOL [Concomitant]
     Active Substance: FLUVASTATIN SODIUM
     Dosage: UNK
     Route: 048
  9. SEQUACOR [Concomitant]
     Active Substance: BISOPROLOL
     Dosage: 10 MILLIGRAM
     Route: 048

REACTIONS (4)
  - Hypocalcaemia [Recovered/Resolved]
  - Electrolyte imbalance [Recovered/Resolved]
  - Cardiac failure [Recovered/Resolved]
  - Hypomagnesaemia [Recovered/Resolved]

NARRATIVE: CASE EVENT DATE: 20171013
